FAERS Safety Report 4818155-3 (Version None)
Quarter: 2005Q4

REPORT INFORMATION
  Report Type: 
  Country: None (occurrence: None)
  Receive Date: 20051102
  Receipt Date: 20051101
  Transmission Date: 20060501
  Serious: Yes (Other)
  Sender: FDA-Public Use
  Company Number: US-GLAXOSMITHKLINE-A0580436A

PATIENT
  Age: 63 Year
  Sex: Female

DRUGS (2)
  1. CITRUCEL CHOCOLATE FIBERSHAKE [Suspect]
     Indication: GASTROINTESTINAL DISORDER
     Route: 048
     Dates: start: 20050101, end: 20050101
  2. LIPITOR [Concomitant]
     Indication: BLOOD CHOLESTEROL INCREASED

REACTIONS (4)
  - DIZZINESS [None]
  - EYE ROLLING [None]
  - REACTION TO FOOD ADDITIVE [None]
  - SYNCOPE [None]
